FAERS Safety Report 24615232 (Version 2)
Quarter: 2025Q2

REPORT INFORMATION
  Report Type: Spontaneous
  Country: US (occurrence: US)
  Receive Date: 20241113
  Receipt Date: 20250609
  Transmission Date: 20250717
  Serious: No
  Sender: SANOFI AVENTIS
  Company Number: US-SA-2024SA311491

PATIENT
  Age: 7 Year
  Sex: Male

DRUGS (2)
  1. DUPIXENT [Suspect]
     Active Substance: DUPILUMAB
     Indication: Eosinophilic oesophagitis
     Dosage: 200 MG, QOW
     Route: 058
     Dates: start: 20240815
  2. EPIDIOLEX [Concomitant]
     Active Substance: CANNABIDIOL
     Route: 048

REACTIONS (1)
  - Inadvertent injection air bubble [Recovered/Resolved]

NARRATIVE: CASE EVENT DATE: 20240815
